FAERS Safety Report 19097729 (Version 1)
Quarter: 2021Q2

REPORT INFORMATION
  Report Type: Report from Study
  Country: US (occurrence: US)
  Receive Date: 20210406
  Receipt Date: 20210406
  Transmission Date: 20210717
  Serious: Yes (Other)
  Sender: FDA-Public Use
  Company Number: US-TAKEDA-2021TUS020969

PATIENT
  Sex: Female

DRUGS (1)
  1. 644 (ECALLANTIDE) [Suspect]
     Active Substance: ECALLANTIDE
     Indication: HEREDITARY ANGIOEDEMA
     Route: 050

REACTIONS (5)
  - Hereditary angioedema [Recovered/Resolved]
  - Exposure during pregnancy [Unknown]
  - Hypersensitivity [Recovered/Resolved]
  - Blindness transient [Recovered/Resolved]
  - Anaphylactic reaction [Recovered/Resolved]
